FAERS Safety Report 23673722 (Version 1)
Quarter: 2024Q1

REPORT INFORMATION
  Report Type: Spontaneous
  Country: US (occurrence: None)
  Receive Date: 20240326
  Receipt Date: 20240326
  Transmission Date: 20240410
  Serious: Yes (Hospitalization)
  Sender: FDA-Public Use
  Company Number: None

PATIENT
  Age: 66 Year
  Sex: Male
  Weight: 97 kg

DRUGS (1)
  1. CISPLATIN [Suspect]
     Active Substance: CISPLATIN
     Dates: end: 20210709

REACTIONS (4)
  - Mucosal inflammation [None]
  - Dehydration [None]
  - Oral pain [None]
  - General physical health deterioration [None]

NARRATIVE: CASE EVENT DATE: 20210713
